FAERS Safety Report 4990104-7 (Version None)
Quarter: 2006Q2

REPORT INFORMATION
  Report Type: 
  Country: None (occurrence: None)
  Receive Date: 20060503
  Receipt Date: 20050607
  Transmission Date: 20061013
  Serious: Yes (Hospitalization, Other)
  Sender: FDA-Public Use
  Company Number: US-MERCK-0506USA01066

PATIENT
  Age: 36 Year
  Sex: Male
  Weight: 105 kg

DRUGS (2)
  1. VIOXX [Suspect]
     Indication: ARTHRALGIA
     Route: 048
     Dates: start: 20020101, end: 20040101
  2. PREVACID [Concomitant]
     Route: 065

REACTIONS (30)
  - ANGINA PECTORIS [None]
  - ANGINA UNSTABLE [None]
  - CARDIAC DISORDER [None]
  - CEREBROVASCULAR ACCIDENT [None]
  - CHEST PAIN [None]
  - COLITIS [None]
  - COMPLEX PARTIAL SEIZURES [None]
  - CORONARY ARTERY DISEASE [None]
  - CORONARY ARTERY OCCLUSION [None]
  - CORONARY ARTERY STENOSIS [None]
  - DIABETES MELLITUS [None]
  - EMOTIONAL DISTRESS [None]
  - ENCEPHALOMALACIA [None]
  - HAEMATURIA [None]
  - HEADACHE [None]
  - HYPERGLYCAEMIA [None]
  - HYPERKALAEMIA [None]
  - HYPERTENSION [None]
  - MALNUTRITION [None]
  - METABOLIC ACIDOSIS [None]
  - MIGRAINE WITHOUT AURA [None]
  - MYOCARDIAL INFARCTION [None]
  - NEUROPATHY PERIPHERAL [None]
  - NODAL RHYTHM [None]
  - PROTEINURIA [None]
  - RENAL FAILURE ACUTE [None]
  - SCIATICA [None]
  - SEPSIS [None]
  - SHOCK [None]
  - STENT OCCLUSION [None]
